FAERS Safety Report 18403626 (Version 1)
Quarter: 2020Q4

REPORT INFORMATION
  Report Type: Spontaneous
  Country: US (occurrence: US)
  Receive Date: 20201019
  Receipt Date: 20201019
  Transmission Date: 20210114
  Serious: No
  Sender: FDA-Public Use
  Company Number: None

PATIENT
  Age: 38 Year
  Sex: Female
  Weight: 72 kg

DRUGS (7)
  1. KEFLEX [Suspect]
     Active Substance: CEPHALEXIN
     Indication: ARTHROPOD STING
     Dosage: ?          QUANTITY:1 CAPSULE(S);?
     Route: 048
     Dates: start: 20201014, end: 20201018
  2. VITAMIN D [Concomitant]
     Active Substance: VITAMIN D NOS
  3. KEFLEX [Suspect]
     Active Substance: CEPHALEXIN
     Indication: LOCALISED INFECTION
     Dosage: ?          QUANTITY:1 CAPSULE(S);?
     Route: 048
     Dates: start: 20201014, end: 20201018
  4. MUPIROCIN. [Concomitant]
     Active Substance: MUPIROCIN
  5. VENLAFAXINE [Concomitant]
     Active Substance: VENLAFAXINE HYDROCHLORIDE
  6. ACETAMINOPHEN 325BUTALB50/CAFN 40MG [Concomitant]
  7. VITAMIN B12 [Concomitant]
     Active Substance: CYANOCOBALAMIN

REACTIONS (5)
  - Diarrhoea [None]
  - Headache [None]
  - Abdominal pain upper [None]
  - Nausea [None]
  - Pain [None]

NARRATIVE: CASE EVENT DATE: 20201017
